FAERS Safety Report 9023582 (Version 2)
Quarter: 2013Q1

REPORT INFORMATION
  Report Type: Spontaneous
  Country: JP (occurrence: JP)
  Receive Date: 20130121
  Receipt Date: 20130125
  Transmission Date: 20140127
  Serious: Yes (Hospitalization)
  Sender: FDA-Public Use
  Company Number: JP-NOVOPROD-368904

PATIENT
  Age: 81 Year
  Sex: Female

DRUGS (3)
  1. NOVOLIN R [Suspect]
     Indication: TYPE 2 DIABETES MELLITUS
     Route: 058
  2. NOVOLIN R [Suspect]
     Route: 058
  3. INSULIN GLULISINE [Suspect]
     Indication: TYPE 2 DIABETES MELLITUS
     Route: 058

REACTIONS (2)
  - Anti-insulin antibody positive [Recovered/Resolved]
  - Glycosylated haemoglobin increased [Recovered/Resolved]
